FAERS Safety Report 7942322-3 (Version None)
Quarter: 2011Q4

REPORT INFORMATION
  Report Type: 
  Country: None (occurrence: None)
  Receive Date: 20111128
  Receipt Date: 20111118
  Transmission Date: 20120403
  Serious: Yes (Death, Hospitalization)
  Sender: FDA-Public Use
  Company Number: US-ELI_LILLY_AND_COMPANY-US201111002683

PATIENT
  Sex: Male
  Weight: 67.4 kg

DRUGS (16)
  1. TASISULAM SODIUM [Suspect]
     Indication: PANCREATIC CARCINOMA
     Dosage: UNK MG, UNK
     Dates: start: 20111103
  2. INSULIN LISPRO [Concomitant]
     Indication: DIABETES MELLITUS
     Dosage: UNK
     Dates: start: 20030201
  3. OXYCODONE HCL [Concomitant]
     Indication: PAIN
     Dosage: 20 MG, BID
     Dates: start: 20100201
  4. LYRICA [Concomitant]
     Indication: NEUROPATHY PERIPHERAL
     Dosage: UNK
     Dates: start: 20110501
  5. FOLIC ACID [Concomitant]
     Indication: PREMEDICATION
  6. LEVAQUIN [Concomitant]
     Indication: PYREXIA
     Dosage: 500 MG, QD
     Route: 048
     Dates: start: 20111104, end: 20111105
  7. PANCRELIPASE [Concomitant]
     Indication: SUPPLEMENTATION THERAPY
     Dosage: UNK
     Dates: start: 20100201
  8. DEXAMETHASONE [Concomitant]
     Indication: PREMEDICATION
  9. PEMETREXED [Suspect]
     Indication: OVARIAN CANCER
     Dosage: UNK
     Dates: start: 20111031
  10. CALCIUM ACETATE [Concomitant]
     Indication: SUPPLEMENTATION THERAPY
     Dosage: UNK
     Dates: start: 19980101
  11. VYTORIN [Concomitant]
     Indication: BLOOD CHOLESTEROL
     Dosage: UNK
     Dates: start: 20010101
  12. MULTI-VITAMIN [Concomitant]
     Indication: SUPPLEMENTATION THERAPY
  13. OMEPRAZOLE [Concomitant]
     Indication: GASTROOESOPHAGEAL REFLUX DISEASE
     Dosage: UNK
     Dates: start: 20111025
  14. DIAZEPAM [Concomitant]
     Indication: ANXIETY
     Dosage: 5 MG, BID
     Dates: start: 19700101
  15. PREDNISONE TAB [Concomitant]
     Indication: ARTHRITIS
     Dosage: UNK
     Dates: start: 20010101
  16. CYANOCOBALAMIN [Concomitant]
     Indication: SUPPLEMENTATION THERAPY

REACTIONS (1)
  - MULTI-ORGAN FAILURE [None]
